FAERS Safety Report 16610845 (Version 1)
Quarter: 2019Q3

REPORT INFORMATION
  Report Type: Spontaneous
  Country: US (occurrence: US)
  Receive Date: 20190722
  Receipt Date: 20190722
  Transmission Date: 20191004
  Serious: No
  Sender: FDA-Public Use
  Company Number: US-FOUNDATIONCONSUMERHC-2019-US-006708

PATIENT
  Age: 29 Year
  Sex: Female
  Weight: 79.38 kg

DRUGS (4)
  1. ST JOHN WORT [Concomitant]
     Dosage: EVERY OTHER DAY FOR 6 MONTHS
  2. GINKGO BILOBA [Concomitant]
     Active Substance: GINKGO
  3. PLAN B ONE-STEP [Suspect]
     Active Substance: LEVONORGESTREL
     Indication: POST COITAL CONTRACEPTION
     Dosage: 1.5 MG
     Route: 048
     Dates: start: 20190402, end: 20190402
  4. MULTIVITAMIN [Concomitant]
     Active Substance: VITAMINS

REACTIONS (1)
  - Vaginal haemorrhage [Not Recovered/Not Resolved]

NARRATIVE: CASE EVENT DATE: 20190409
